FAERS Safety Report 8102856-8 (Version None)
Quarter: 2012Q1

REPORT INFORMATION
  Report Type: 
  Country: None (occurrence: None)
  Receive Date: 20120201
  Receipt Date: 20120124
  Transmission Date: 20120608
  Serious: Yes (Life-Threatening, Hospitalization)
  Sender: FDA-Public Use
  Company Number: US-CELGENEUS-163-21660-11090876

PATIENT
  Sex: Male
  Weight: 66 kg

DRUGS (55)
  1. MAGNESIUM SULFATE [Concomitant]
     Dosage: 2 GRAM
     Route: 041
     Dates: start: 20111003, end: 20111003
  2. POTASSIUM CHLORIDE [Concomitant]
     Dosage: 20 MILLIEQUIVALENTS
     Route: 041
     Dates: start: 20111003, end: 20111003
  3. LOVENOX [Concomitant]
     Dosage: 40 MILLIGRAM
     Route: 058
     Dates: start: 20110901, end: 20110928
  4. LOVENOX [Concomitant]
     Dosage: 40 MILLIGRAM
     Route: 058
     Dates: start: 20111002
  5. ERBITUX [Suspect]
     Dosage: 400 MILLIGRAM/SQ. METER
     Route: 065
     Dates: start: 20110627, end: 20110809
  6. TRIPLE MIX (BENADRYL, MAALOX, LIDOCAINE) [Concomitant]
     Dosage: 1 TEASPOON
     Route: 048
     Dates: start: 20110718
  7. VERAMYST [Concomitant]
     Indication: SEASONAL ALLERGY
     Dosage: 2 SPRAYS
     Route: 045
  8. DEXAMETHASONE [Concomitant]
     Indication: PREMEDICATION
     Dosage: 10 MILLIGRAM
     Route: 041
     Dates: start: 20110627, end: 20110809
  9. REGULAR INSULIN [Concomitant]
     Dosage: SLIDING SCALE
     Route: 058
     Dates: start: 20110905
  10. FAMOTIDINE [Concomitant]
     Indication: PROPHYLAXIS
     Dosage: 20 MILLIGRAM
     Route: 041
     Dates: start: 20110904
  11. MAGNESIUM SULFATE [Concomitant]
     Route: 041
     Dates: start: 20111002, end: 20111002
  12. POTASSIUM PHOSPHATES [Concomitant]
     Dosage: 30MMOL
     Route: 041
     Dates: start: 20110905, end: 20110905
  13. INSULIN [Concomitant]
     Dosage: SLIDING SCALE
     Route: 058
     Dates: start: 20110905, end: 20110901
  14. OCEAN SPRAY [Concomitant]
     Route: 045
     Dates: start: 20111003
  15. PHOSNAK [Concomitant]
     Route: 065
     Dates: start: 20111003
  16. ABRAXANE [Suspect]
     Dosage: 20 MILLIGRAM/SQ. METER
     Route: 041
     Dates: start: 20110627, end: 20110809
  17. KLOR-CON [Concomitant]
     Dosage: 40 MILLIEQUIVALENTS
     Route: 048
     Dates: start: 20110822, end: 20110903
  18. METOPROLOL TARTRATE [Concomitant]
     Indication: HYPERTENSION
     Dosage: 50 MILLIGRAM
     Route: 048
  19. SINGULAIR [Concomitant]
     Indication: SEASONAL ALLERGY
     Dosage: 10 MILLIGRAM
     Route: 048
     Dates: start: 20111003
  20. ONDANSETRON HCL [Concomitant]
     Indication: NAUSEA
     Dosage: 8 MILLIGRAM
     Route: 048
     Dates: start: 20110627, end: 20110903
  21. MAGNESIUM SULFATE [Concomitant]
     Dosage: 2 GRAM
     Route: 041
     Dates: start: 20110815, end: 20110823
  22. ACTIQ [Concomitant]
     Indication: PAIN
     Dosage: 200 MICROGRAM
     Dates: start: 20110718
  23. PROCHLORPERAZINE MALEATE [Concomitant]
     Indication: NAUSEA
     Dosage: 10 MILLIGRAM
     Route: 048
     Dates: start: 20110627, end: 20110903
  24. QUALAQUIN [Concomitant]
     Dosage: 324 MILLIGRAM
     Route: 048
  25. 0.9% NS [Concomitant]
     Dosage: 1000 MILLILITER
     Route: 041
     Dates: start: 20110815, end: 20110823
  26. POTASSIUM CHLORIDE [Concomitant]
     Dosage: 40 MILLIEQUIVALENTS
     Route: 041
     Dates: start: 20110815, end: 20110823
  27. ASTEPRO [Concomitant]
     Indication: SEASONAL ALLERGY
     Dosage: 205.5 MICROGRAM
     Route: 045
  28. METOPROLOL TARTRATE [Concomitant]
     Dosage: 1.25 MILLIGRAM
     Route: 041
     Dates: start: 20110930, end: 20111003
  29. DOMEBORO [Concomitant]
     Indication: DERMATITIS
     Dosage: ONE APP
     Route: 061
     Dates: start: 20110810, end: 20110903
  30. CALCIUM GLUCONATE [Concomitant]
     Dosage: 3 GRAM
     Route: 041
     Dates: start: 20110907, end: 20110907
  31. FAMOTIDINE [Concomitant]
     Indication: PREMEDICATION
     Dosage: 20 MILLIGRAM
     Route: 041
     Dates: start: 20110627, end: 20110809
  32. MAGNESIUM SULFATE [Concomitant]
     Dosage: 2 GRAM
     Route: 041
     Dates: start: 20110903, end: 20110903
  33. MAGNESIUM SULFATE [Concomitant]
     Dosage: 2 GRAM
     Route: 041
     Dates: start: 20110929, end: 20110929
  34. GENASAL [Concomitant]
     Indication: NASAL CONGESTION
     Dosage: 2
     Route: 045
     Dates: start: 20111003
  35. 0.9% NS [Concomitant]
     Indication: DEHYDRATION
     Dosage: 1000 MILLILITER
     Route: 041
     Dates: start: 20110801, end: 20110801
  36. POTASSIUM PHOSPHATES [Concomitant]
     Dosage: 3 GRAM
     Route: 041
     Dates: start: 20110907, end: 20110907
  37. POTASSIUM CHLORIDE [Concomitant]
     Dosage: 20-40MEQ
     Route: 048
     Dates: start: 20110903, end: 20110904
  38. CISPLATIN [Suspect]
     Dosage: 20 MILLIGRAM/SQ. METER
     Route: 065
     Dates: start: 20110627, end: 20110809
  39. MAGNESIUM OXIDE [Concomitant]
     Dosage: 400 MILLIGRAM
     Route: 048
     Dates: start: 20110808, end: 20110815
  40. METOPROLOL TARTRATE [Concomitant]
     Dosage: 1.25 MILLIGRAM
     Route: 041
     Dates: start: 20110929, end: 20110930
  41. ONDANSETRON HCL [Concomitant]
     Indication: PREMEDICATION
     Dosage: 32 MILLIGRAM
     Route: 041
     Dates: start: 20110705, end: 20110809
  42. 0.9% NS [Concomitant]
     Dosage: 1000 MILLILITER
     Route: 041
     Dates: start: 20110808, end: 20110808
  43. 0.9% NS [Concomitant]
     Dosage: 1000 MILLILITER
     Route: 041
     Dates: start: 20110903, end: 20110903
  44. MORPHINE SULFATE [Concomitant]
     Indication: PAIN
     Dosage: 4 MILLIGRAM
     Route: 041
     Dates: start: 20110815, end: 20110815
  45. ROCEPHIN [Concomitant]
     Indication: PNEUMONIA
     Dosage: 1 GRAM
     Route: 041
     Dates: start: 20110903
  46. MAGNESIUM SULFATE [Concomitant]
     Dosage: 4 GRAM
     Route: 041
     Dates: start: 20110809, end: 20110809
  47. POTASSIUM PHOSPHATES [Concomitant]
     Dosage: 30MMOL
     Route: 041
     Dates: start: 20111002, end: 20111002
  48. DOXYCYCLINE [Concomitant]
     Indication: INFECTION
     Dosage: 100 MILLIGRAM
     Route: 048
     Dates: start: 20110901, end: 20110928
  49. RED BLOOD CELLS [Concomitant]
     Dosage: 2 UNITS
     Route: 041
     Dates: start: 20110901
  50. ERBITUX [Suspect]
     Dosage: 250 MILLIGRAM/SQ. METER
     Route: 065
     Dates: start: 20110705
  51. ATIVAN [Concomitant]
     Indication: NAUSEA
     Dosage: .5 MILLIGRAM
     Route: 048
     Dates: start: 20110627, end: 20110903
  52. METOPROLOL TARTRATE [Concomitant]
     Dosage: 25 MILLIGRAM
     Route: 065
     Dates: start: 20111003
  53. BENADRYL [Concomitant]
     Indication: PREMEDICATION
     Dosage: 50 MILLIGRAM
     Route: 041
     Dates: start: 20110627, end: 20110809
  54. CALCIUM GLUCONATE [Concomitant]
     Dosage: 2 GRAM
     Route: 041
     Dates: start: 20110906, end: 20110906
  55. POTASSIUM CHLORIDE [Concomitant]
     Dosage: 40 MILLIEQUIVALENTS
     Route: 041
     Dates: start: 20111001, end: 20111001

REACTIONS (7)
  - DERMATITIS ACNEIFORM [None]
  - STOMATITIS [None]
  - ENTERITIS INFECTIOUS [None]
  - FALL [None]
  - FEMORAL HERNIA, OBSTRUCTIVE [None]
  - DEHYDRATION [None]
  - TACHYCARDIA [None]
